FAERS Safety Report 14824277 (Version 1)
Quarter: 2018Q2

REPORT INFORMATION
  Report Type: Spontaneous
  Country: US (occurrence: US)
  Receive Date: 20180429
  Receipt Date: 20180429
  Transmission Date: 20180711
  Serious: No
  Sender: FDA-Public Use
  Company Number: US-009507513-1804USA004776

PATIENT
  Sex: Female
  Weight: 57.14 kg

DRUGS (1)
  1. NEXPLANON [Suspect]
     Active Substance: ETONOGESTREL
     Indication: CONTRACEPTION
     Dosage: 1 DF, ONE IMPLANT EVERY 3 YEARS
     Route: 059
     Dates: start: 201704, end: 20180409

REACTIONS (2)
  - Device breakage [Recovered/Resolved]
  - Mood swings [Unknown]

NARRATIVE: CASE EVENT DATE: 2017
